FAERS Safety Report 9530635 (Version 2)
Quarter: 2013Q4

REPORT INFORMATION
  Report Type: Spontaneous
  Country: US (occurrence: US)
  Receive Date: 20130918
  Receipt Date: 20131016
  Transmission Date: 20140711
  Serious: No
  Sender: FDA-Public Use
  Company Number: US-009507513-1309USA003322

PATIENT
  Sex: Male

DRUGS (6)
  1. VICTRELIS [Suspect]
     Indication: CHRONIC HEPATITIS C
     Dosage: UNK
  2. PEGASYS [Suspect]
     Indication: CHRONIC HEPATITIS C
     Dosage: PROCLICK
     Route: 058
     Dates: start: 20130716
  3. RIBASPHERE [Suspect]
     Indication: CHRONIC HEPATITIS C
     Dosage: 1000 MG DIVIDED DOSE DAILY
     Dates: start: 20130716, end: 20131001
  4. RIBASPHERE [Suspect]
     Dosage: 600 MG DIVIDED DOSES DAILY
  5. RIBASPHERE [Suspect]
     Dosage: 400 MG, QD
  6. ACETAMINOPHEN (+) OXYCODONE HYDROCHLORIDE [Concomitant]

REACTIONS (9)
  - Arthropod bite [Recovered/Resolved]
  - Oral herpes [Recovered/Resolved]
  - Pain [Unknown]
  - Aphthous stomatitis [Recovered/Resolved]
  - Bone pain [Recovered/Resolved]
  - Pyrexia [Unknown]
  - Chills [Recovered/Resolved]
  - White blood cell count decreased [Unknown]
  - Hepatitis C virus test positive [Unknown]
